FAERS Safety Report 12696930 (Version 2)
Quarter: 2016Q4

REPORT INFORMATION
  Report Type: Report from Study
  Country: US (occurrence: US)
  Receive Date: 20160830
  Receipt Date: 20161028
  Transmission Date: 20170207
  Serious: No
  Sender: FDA-Public Use
  Company Number: US-AMGEN-USASP2016106385

PATIENT
  Age: 50 Year
  Sex: Female

DRUGS (4)
  1. ENBREL [Suspect]
     Active Substance: ETANERCEPT
     Indication: PSORIASIS
     Dosage: 50 MG, 2 TIMES/WK (TUESDAY AND FRIDAY))
     Route: 065
     Dates: start: 201604
  2. ENBREL [Suspect]
     Active Substance: ETANERCEPT
     Dosage: UNK UNK, 2 TIMES/WK
     Route: 065
     Dates: start: 2016
  3. BIOTIN [Concomitant]
     Active Substance: BIOTIN
     Dosage: UNK
     Dates: end: 2016
  4. ENBREL [Suspect]
     Active Substance: ETANERCEPT
     Dosage: UNK UNK, QWK
     Route: 065
     Dates: start: 2016

REACTIONS (9)
  - Nasopharyngitis [Unknown]
  - Dehydration [Unknown]
  - Dry skin [Unknown]
  - Drug effect incomplete [Unknown]
  - Injection site swelling [Unknown]
  - Psoriasis [Unknown]
  - Injection site discomfort [Unknown]
  - Injection site erythema [Unknown]
  - Wrong technique in product usage process [Unknown]

NARRATIVE: CASE EVENT DATE: 2016
